FAERS Safety Report 23823924 (Version 1)
Quarter: 2024Q2

REPORT INFORMATION
  Report Type: Spontaneous
  Country: CN (occurrence: CN)
  Receive Date: 20240507
  Receipt Date: 20240507
  Transmission Date: 20240716
  Serious: Yes (Hospitalization)
  Sender: FDA-Public Use
  Company Number: CN-JNJFOC-20240490009

PATIENT
  Age: 55 Year
  Sex: Female

DRUGS (3)
  1. TYLENOL [Suspect]
     Active Substance: ACETAMINOPHEN
     Indication: Pyrexia
     Route: 048
     Dates: start: 20240414, end: 20240415
  2. TYLENOL [Suspect]
     Active Substance: ACETAMINOPHEN
     Indication: Headache
  3. ROSUVASTATIN CALCIUM [Concomitant]
     Active Substance: ROSUVASTATIN CALCIUM
     Indication: Hyperlipidaemia
     Route: 048
     Dates: start: 20130613, end: 20240416

REACTIONS (1)
  - Hepatic failure [Recovering/Resolving]

NARRATIVE: CASE EVENT DATE: 20240416
